FAERS Safety Report 5901026-9 (Version None)
Quarter: 2008Q3

REPORT INFORMATION
  Report Type: 
  Country: None (occurrence: None)
  Receive Date: 20080924
  Receipt Date: 20080919
  Transmission Date: 20090109
  Serious: Yes (Death, Hospitalization, Other)
  Sender: FDA-Public Use
  Company Number: 2008SP016377

PATIENT
  Age: 54 Year
  Sex: Female
  Weight: 77 kg

DRUGS (11)
  1. NOXAFIL [Suspect]
     Indication: BRONCHOPULMONARY ASPERGILLOSIS
     Dosage: 800 MG;QD;PO
     Route: 048
     Dates: start: 20080728, end: 20080801
  2. VORICONAZOLE (VORICONAZOLE) [Suspect]
     Indication: ASPERGILLOSIS
     Dosage: 400 MG;QD;PO
     Route: 048
     Dates: start: 20080718, end: 20080730
  3. MEROPENEM [Concomitant]
  4. TILIDIN [Concomitant]
  5. CLONAZEPAM [Concomitant]
  6. MIDAZOLAM HCL [Concomitant]
  7. METHOTREXATE SODIUM [Concomitant]
  8. PERFALGAN [Concomitant]
  9. TRIMEPRAMIN [Concomitant]
  10. FLUOXETINE [Concomitant]
  11. FUROSEMIDE [Concomitant]

REACTIONS (9)
  - CARDIAC ARREST [None]
  - COGNITIVE DISORDER [None]
  - CONVULSION [None]
  - DISTURBANCE IN ATTENTION [None]
  - LONG QT SYNDROME [None]
  - LOSS OF CONSCIOUSNESS [None]
  - PRESYNCOPE [None]
  - RESPIRATORY ARREST [None]
  - VENTRICULAR FIBRILLATION [None]
